FAERS Safety Report 15611082 (Version 3)
Quarter: 2018Q4

REPORT INFORMATION
  Report Type: Spontaneous
  Country: CA (occurrence: CA)
  Receive Date: 20181113
  Receipt Date: 20181211
  Transmission Date: 20190205
  Serious: Yes (Life-Threatening, Hospitalization, Disabling, Other)
  Sender: FDA-Public Use
  Company Number: CA-009507513-1811CAN003453

PATIENT
  Age: 56 Year
  Sex: Female
  Weight: 92.8 kg

DRUGS (4)
  1. ZEPATIER [Suspect]
     Active Substance: ELBASVIR\GRAZOPREVIR
     Dosage: UNK
     Route: 048
     Dates: start: 20181031
  2. SERTRALINE HYDROCHLORIDE. [Concomitant]
     Active Substance: SERTRALINE HYDROCHLORIDE
     Dosage: 100 MILLIGRAM, DAILY
  3. ZEPATIER [Suspect]
     Active Substance: ELBASVIR\GRAZOPREVIR
     Indication: HEPATITIS C
     Dosage: 1 DOSAGE FORM, QD X 12 WEEKS
     Route: 048
     Dates: start: 20181005
  4. MIRTAZAPINE. [Concomitant]
     Active Substance: MIRTAZAPINE
     Dosage: 15 MILLIGRAM, DAILY

REACTIONS (6)
  - White blood cell count increased [Unknown]
  - Monocyte count increased [Unknown]
  - Granulocytes abnormal [Unknown]
  - Lymphocyte count increased [Unknown]
  - Leukaemia [Not Recovered/Not Resolved]
  - Blast cell count increased [Unknown]

NARRATIVE: CASE EVENT DATE: 20181031
